FAERS Safety Report 8202747-8 (Version None)
Quarter: 2012Q1

REPORT INFORMATION
  Report Type: 
  Country: None (occurrence: None)
  Receive Date: 20120312
  Receipt Date: 20120312
  Transmission Date: 20120608
  Serious: Yes (Disabling)
  Sender: FDA-Public Use
  Company Number: None

PATIENT
  Age: 19 Year
  Sex: Female

DRUGS (2)
  1. SOLU-MEDROL [Suspect]
  2. SOLU-MEDROL [Concomitant]

REACTIONS (3)
  - PHARYNGEAL HYPOAESTHESIA [None]
  - DIZZINESS [None]
  - DYSPNOEA [None]
